FAERS Safety Report 8275760-2 (Version None)
Quarter: 2012Q2

REPORT INFORMATION
  Report Type: 
  Country: None (occurrence: None)
  Receive Date: 20120410
  Receipt Date: 20120410
  Transmission Date: 20120825
  Serious: No
  Sender: FDA-Public Use
  Company Number: None

PATIENT
  Age: 62 Year
  Sex: Male
  Weight: 100.3 kg

DRUGS (2)
  1. FLUOXETINE [Suspect]
     Indication: POST-TRAUMATIC STRESS DISORDER
     Dates: start: 20110929, end: 20111109
  2. FLUOXETINE [Suspect]
     Indication: DEPRESSION
     Dates: start: 20110929, end: 20111109

REACTIONS (3)
  - URTICARIA [None]
  - RASH GENERALISED [None]
  - PRURITUS [None]
